FAERS Safety Report 7978590-1 (Version None)
Quarter: 2011Q4

REPORT INFORMATION
  Report Type: 
  Country: None (occurrence: None)
  Receive Date: 20111214
  Receipt Date: 20111205
  Transmission Date: 20120403
  Serious: Yes (Other)
  Sender: FDA-Public Use
  Company Number: US-NAPPMUNDI-USA-2011-0077554

PATIENT
  Sex: Male

DRUGS (1)
  1. OXYCONTIN [Suspect]
     Indication: PAIN
     Dosage: 20 MG, TID
     Route: 048
     Dates: start: 20110601

REACTIONS (8)
  - MENTAL IMPAIRMENT [None]
  - DRUG HYPERSENSITIVITY [None]
  - RHINORRHOEA [None]
  - UNEVALUABLE EVENT [None]
  - MOBILITY DECREASED [None]
  - PRODUCT QUALITY ISSUE [None]
  - BLINDNESS TRANSIENT [None]
  - MUSCLE SPASMS [None]
